FAERS Safety Report 12075805 (Version 8)
Quarter: 2018Q2

REPORT INFORMATION
  Report Type: Spontaneous
  Country: US (occurrence: US)
  Receive Date: 20160214
  Receipt Date: 20180508
  Transmission Date: 20180711
  Serious: Yes (Congenital Anomaly, Other)
  Sender: FDA-Public Use
  Company Number: PHEH2016US003247

PATIENT
  Sex: Male

DRUGS (3)
  1. ZOFRAN [Suspect]
     Active Substance: ONDANSETRON HYDROCHLORIDE
     Indication: FOETAL EXPOSURE DURING PREGNANCY
     Route: 064
  2. ZOFRAN [Suspect]
     Active Substance: ONDANSETRON HYDROCHLORIDE
     Indication: FOETAL EXPOSURE DURING PREGNANCY
     Route: 064
  3. ZOFRAN ODT [Suspect]
     Active Substance: ONDANSETRON HYDROCHLORIDE
     Indication: FOETAL EXPOSURE DURING PREGNANCY
     Route: 064

REACTIONS (18)
  - Brain malformation [Unknown]
  - Arnold-Chiari malformation [Unknown]
  - Congenital central nervous system anomaly [Unknown]
  - Bacterial toxaemia [Unknown]
  - Anhedonia [Unknown]
  - Tension headache [Unknown]
  - Pain [Unknown]
  - Anxiety [Unknown]
  - Congenital anomaly [Unknown]
  - Emotional distress [Unknown]
  - Muscle tightness [Unknown]
  - Migraine [Unknown]
  - Injury [Unknown]
  - Cluster headache [Unknown]
  - Foetal exposure during pregnancy [Unknown]
  - Disturbance in attention [Unknown]
  - Back pain [Unknown]
  - Mood swings [Unknown]
